FAERS Safety Report 13325555 (Version 3)
Quarter: 2017Q2

REPORT INFORMATION
  Report Type: Report from Study
  Country: US (occurrence: US)
  Receive Date: 20170310
  Receipt Date: 20170505
  Transmission Date: 20170830
  Serious: Yes (Hospitalization)
  Sender: FDA-Public Use
  Company Number: US-JNJFOC-20170310911

PATIENT
  Age: 86 Year
  Sex: Female

DRUGS (16)
  1. VITAMIN D3 [Concomitant]
     Active Substance: CHOLECALCIFEROL
  2. HYDRALAZINE [Concomitant]
     Active Substance: HYDRALAZINE HYDROCHLORIDE
  3. LANSOPRAZOLE. [Concomitant]
     Active Substance: LANSOPRAZOLE
  4. NACL [Concomitant]
     Active Substance: SODIUM CHLORIDE
  5. IMBRUVICA [Suspect]
     Active Substance: IBRUTINIB
     Indication: CHRONIC LYMPHOCYTIC LEUKAEMIA
     Route: 048
     Dates: start: 20161214
  6. FERREX [Concomitant]
  7. CLONIDINE. [Concomitant]
     Active Substance: CLONIDINE
  8. PROPANOLOL [Concomitant]
     Active Substance: PROPRANOLOL HYDROCHLORIDE
  9. NIFEDIPINE. [Concomitant]
     Active Substance: NIFEDIPINE
  10. SYNTHROID [Concomitant]
     Active Substance: LEVOTHYROXINE SODIUM
  11. PRESERVISION [Concomitant]
     Active Substance: MINERALS\VITAMINS
  12. PRAVASTATIN. [Concomitant]
     Active Substance: PRAVASTATIN
  13. MONTELUKAST [Concomitant]
     Active Substance: MONTELUKAST SODIUM
  14. MODAFINIL. [Concomitant]
     Active Substance: MODAFINIL
  15. QUETIAPINE. [Concomitant]
     Active Substance: QUETIAPINE
  16. COQ10 [Concomitant]
     Active Substance: UBIDECARENONE

REACTIONS (8)
  - Hypertension [Recovering/Resolving]
  - Incontinence [Unknown]
  - Tachyphrenia [Unknown]
  - Dry mouth [Unknown]
  - Irritability [Unknown]
  - Hyponatraemia [Recovering/Resolving]
  - Fatigue [Unknown]
  - Decreased appetite [Unknown]

NARRATIVE: CASE EVENT DATE: 20170115
